FAERS Safety Report 15732409 (Version 1)
Quarter: 2018Q4

REPORT INFORMATION
  Report Type: Spontaneous
  Country: US (occurrence: US)
  Receive Date: 20181217
  Receipt Date: 20181217
  Transmission Date: 20190205
  Serious: Yes (Disabling, Other)
  Sender: FDA-Public Use
  Company Number: None

PATIENT
  Age: 28 Year
  Sex: Female
  Weight: 54 kg

DRUGS (1)
  1. VENLAFAXINE [Suspect]
     Active Substance: VENLAFAXINE HYDROCHLORIDE
     Indication: ANXIETY
     Route: 048
     Dates: start: 20130701, end: 20180601

REACTIONS (13)
  - Impaired work ability [None]
  - Withdrawal syndrome [None]
  - Loss of personal independence in daily activities [None]
  - Menstruation delayed [None]
  - Nausea [None]
  - Gastric disorder [None]
  - Weight decreased [None]
  - Muscle twitching [None]
  - Agoraphobia [None]
  - Insomnia [None]
  - Skin disorder [None]
  - Panic attack [None]
  - Suicidal ideation [None]

NARRATIVE: CASE EVENT DATE: 20170701
